FAERS Safety Report 4491552-4 (Version None)
Quarter: 2004Q4

REPORT INFORMATION
  Report Type: 
  Country: None (occurrence: None)
  Receive Date: 20041029
  Receipt Date: 20041006
  Transmission Date: 20050328
  Serious: Yes (Hospitalization, Other)
  Sender: FDA-Public Use
  Company Number: 2004-00608

PATIENT
  Age: 78 Year
  Sex: Female
  Weight: 70.7 kg

DRUGS (12)
  1. VELCADE [Suspect]
     Indication: MULTIPLE MYELOMA
     Dosage: 2.40 MG, SINGLE, IV BOLUS
     Route: 040
     Dates: start: 20040928, end: 20040928
  2. ATENOLOL [Concomitant]
  3. MONOPRIL [Concomitant]
  4. KLOR-CON [Concomitant]
  5. SLOW-MAG (MAGNESIUM CHLORIDE ANHYDROUS) [Concomitant]
  6. LASIX [Concomitant]
  7. LEXAPRO [Concomitant]
  8. COUMADIN [Concomitant]
  9. INSULIN [Concomitant]
  10. LIPITOR [Concomitant]
  11. GABAPENTIN [Concomitant]
  12. PREMARIN [Concomitant]

REACTIONS (9)
  - ABDOMINAL PAIN UPPER [None]
  - APATHY [None]
  - ASTHENIA [None]
  - BACK PAIN [None]
  - BALANCE DISORDER [None]
  - CONSTIPATION [None]
  - INAPPROPRIATE ANTIDIURETIC HORMONE SECRETION [None]
  - NAUSEA [None]
  - VOMITING [None]
